FAERS Safety Report 6000203-9 (Version None)
Quarter: 2008Q4

REPORT INFORMATION
  Report Type: 
  Country: None (occurrence: None)
  Receive Date: 20081215
  Receipt Date: 20081203
  Transmission Date: 20090506
  Serious: Yes (Death)
  Sender: FDA-Public Use
  Company Number: CN-PFIZER INC-2008152233

PATIENT

DRUGS (2)
  1. SULPERAZON [Suspect]
     Indication: LUNG INFECTION
     Route: 042
     Dates: start: 20080901, end: 20080901
  2. HEPARIN SODIUM [Interacting]
     Dates: start: 20080101

REACTIONS (2)
  - CEREBRAL HAEMORRHAGE [None]
  - COAGULATION TEST ABNORMAL [None]
